FAERS Safety Report 15760438 (Version 1)
Quarter: 2018Q4

REPORT INFORMATION
  Report Type: Spontaneous
  Country: MA (occurrence: MA)
  Receive Date: 20181226
  Receipt Date: 20181226
  Transmission Date: 20190205
  Serious: Yes (Hospitalization)
  Sender: FDA-Public Use
  Company Number: MA-NOVAST LABORATORIES, LTD-MA-2018NOV000433

PATIENT
  Age: 49 Year
  Sex: Female

DRUGS (1)
  1. CARISOPRODOL\ASPIRIN [Suspect]
     Active Substance: ASPIRIN\CARISOPRODOL
     Indication: ARTHRALGIA
     Dosage: 1 G, UNK
     Route: 048

REACTIONS (2)
  - Kounis syndrome [Recovered/Resolved]
  - Aspirin-exacerbated respiratory disease [Recovered/Resolved]
